FAERS Safety Report 8808554 (Version 1)
Quarter: 2012Q4

REPORT INFORMATION
  Report Type: Spontaneous
  Country: ES (occurrence: None)
  Receive Date: 20120920
  Receipt Date: 20120920
  Transmission Date: 20130627
  Serious: Yes (Other)
  Sender: FDA-Public Use
  Company Number: DSA_59666_2012

PATIENT
  Age: 84 Year
  Sex: Female

DRUGS (9)
  1. MASDIL [Suspect]
     Indication: ATRIAL FLUTTER
     Route: 048
     Dates: start: 20080411, end: 20080415
  2. SPECTRACEF [Concomitant]
  3. KARVEZIDE [Concomitant]
  4. HEMOVAS [Concomitant]
  5. INSULIN [Concomitant]
  6. FERROUS SULFATE [Concomitant]
  7. ROCALTROL [Concomitant]
  8. LORAMET [Concomitant]
  9. ALLOPURINOL [Concomitant]

REACTIONS (1)
  - Renal failure acute [None]
